FAERS Safety Report 22309526 (Version 2)
Quarter: 2023Q2

REPORT INFORMATION
  Report Type: Spontaneous
  Country: US (occurrence: US)
  Receive Date: 20230511
  Receipt Date: 20230512
  Transmission Date: 20230722
  Serious: Yes (Life-Threatening, Other)
  Sender: FDA-Public Use
  Company Number: US-PFIZER INC-PV202300080903

PATIENT
  Age: 26 Year
  Sex: Male

DRUGS (5)
  1. SODIUM CHLORIDE [Suspect]
     Active Substance: SODIUM CHLORIDE
     Indication: Hyponatraemia
     Dosage: 0.45, INFUSION
  2. SODIUM CHLORIDE [Suspect]
     Active Substance: SODIUM CHLORIDE
     Dosage: 3%, 600 ML, INFUSION
  3. SODIUM CHLORIDE [Suspect]
     Active Substance: SODIUM CHLORIDE
     Dosage: 3%, HIGH VOLUME, INFUSION
  4. SODIUM CHLORIDE [Suspect]
     Active Substance: SODIUM CHLORIDE
     Dosage: 0.9% (200ML/H) AND 3% (50-100 ML/H) INFUSION
  5. DEXTROSE [Concomitant]
     Active Substance: DEXTROSE\DEXTROSE MONOHYDRATE
     Dosage: INFUSION, HYPNOTONIC

REACTIONS (2)
  - Drug ineffective for unapproved indication [Recovering/Resolving]
  - Off label use [Recovering/Resolving]
